FAERS Safety Report 14477293 (Version 1)
Quarter: 2018Q1

REPORT INFORMATION
  Report Type: Report from Study
  Country: US (occurrence: US)
  Receive Date: 20180201
  Receipt Date: 20180201
  Transmission Date: 20180509
  Serious: No
  Sender: FDA-Public Use
  Company Number: US-EXELIXIS-CABO-17010001

PATIENT
  Sex: Male

DRUGS (11)
  1. AZELASTINE. [Concomitant]
     Active Substance: AZELASTINE HYDROCHLORIDE
  2. AMLODIPINE [Concomitant]
     Active Substance: AMLODIPINE BESYLATE
  3. SANCUSO [Concomitant]
     Active Substance: GRANISETRON
  4. CABOMETYX [Suspect]
     Active Substance: CABOZANTINIB S-MALATE
     Indication: RENAL CANCER
     Dosage: 20 MG, QD
     Route: 048
  5. ALLOPURINOL. [Concomitant]
     Active Substance: ALLOPURINOL
  6. CABOMETYX [Suspect]
     Active Substance: CABOZANTINIB S-MALATE
     Dosage: 20 MG, QOD
     Route: 048
  7. CLINDAMYCIN. [Concomitant]
     Active Substance: CLINDAMYCIN
  8. DEXAMETHASONE. [Concomitant]
     Active Substance: DEXAMETHASONE
  9. IPRATROPIUM [Concomitant]
     Active Substance: IPRATROPIUM
  10. CARVEDILOL. [Concomitant]
     Active Substance: CARVEDILOL
  11. SENEXON [Concomitant]
     Active Substance: SENNOSIDES A AND B

REACTIONS (1)
  - Skin disorder [Unknown]
